FAERS Safety Report 9109676 (Version 1)
Quarter: 2013Q1

REPORT INFORMATION
  Report Type: Spontaneous
  Country: US (occurrence: US)
  Receive Date: 20130222
  Receipt Date: 20130222
  Transmission Date: 20140127
  Serious: No
  Sender: FDA-Public Use
  Company Number: US-TEVA-340464USA

PATIENT
  Age: 30 Year
  Sex: Female

DRUGS (3)
  1. FLUOROURACIL [Suspect]
  2. OXALIPLATIN [Suspect]
     Indication: COLON CANCER
  3. BEVACIZUMAB [Suspect]

REACTIONS (2)
  - Neuropathy peripheral [Recovered/Resolved]
  - Diarrhoea [Unknown]
